FAERS Safety Report 5972535-1 (Version None)
Quarter: 2008Q4

REPORT INFORMATION
  Report Type: 
  Country: None (occurrence: None)
  Receive Date: 20081201
  Receipt Date: 20081117
  Transmission Date: 20090506
  Serious: Yes (Other)
  Sender: FDA-Public Use
  Company Number: B0546656A

PATIENT
  Age: 49 Year
  Sex: Female

DRUGS (6)
  1. ZOPHREN [Suspect]
     Indication: DRUG USE FOR UNKNOWN INDICATION
     Route: 042
     Dates: start: 20080918, end: 20080918
  2. TAXOTERE [Suspect]
     Indication: BREAST CANCER
     Route: 042
     Dates: start: 20080918, end: 20080918
  3. HERCEPTIN [Suspect]
     Indication: BREAST CANCER
     Route: 042
     Dates: start: 20080918, end: 20080918
  4. SOLU-MEDROL [Suspect]
     Indication: BREAST CANCER
     Route: 042
     Dates: start: 20080918, end: 20080918
  5. TENSTATEN [Concomitant]
     Route: 065
  6. LOXEN LP 50 MG [Concomitant]
     Route: 048

REACTIONS (6)
  - BLISTER [None]
  - ERYTHEMA [None]
  - MYALGIA [None]
  - PAIN IN EXTREMITY [None]
  - RASH ERYTHEMATOUS [None]
  - SKIN EXFOLIATION [None]
